FAERS Safety Report 4713952-7 (Version None)
Quarter: 2005Q3

REPORT INFORMATION
  Report Type: 
  Country: None (occurrence: None)
  Receive Date: 20050712
  Receipt Date: 20050628
  Transmission Date: 20060218
  Serious: Yes (Life-Threatening, Hospitalization)
  Sender: FDA-Public Use
  Company Number: EWC050644575

PATIENT
  Age: 46 Year
  Sex: Male

DRUGS (1)
  1. HUMULIN 70/30 [Suspect]
     Indication: DIABETES MELLITUS
     Dosage: 100 U/ML AS NEEDED
     Dates: start: 20050101

REACTIONS (4)
  - GRAND MAL CONVULSION [None]
  - HYPOGLYCAEMIC COMA [None]
  - REFUSAL OF TREATMENT BY PATIENT [None]
  - TONIC CLONIC MOVEMENTS [None]
